FAERS Safety Report 9768352 (Version 2)
Quarter: 2014Q1

REPORT INFORMATION
  Report Type: Spontaneous
  Country: US (occurrence: US)
  Receive Date: 20131217
  Receipt Date: 20140107
  Transmission Date: 20141002
  Serious: No
  Sender: FDA-Public Use
  Company Number: US-GILEAD-2013-0090078

PATIENT
  Sex: Female
  Weight: 72 kg

DRUGS (23)
  1. LETAIRIS [Suspect]
     Indication: PULMONARY HYPERTENSION
     Dosage: 10 MG, UNK
     Route: 065
     Dates: start: 20131119
  2. LETAIRIS [Suspect]
     Indication: DIASTOLIC DYSFUNCTION
  3. TYLENOL                            /00020001/ [Concomitant]
     Dosage: 650 MG, QID
     Route: 048
  4. ASPIRIN [Concomitant]
     Dosage: 81 MG, QD
     Route: 048
  5. ERGOCALCIFEROL [Concomitant]
     Dosage: 1 DF, Q1WK
     Route: 048
     Dates: start: 20130409
  6. LANTUS [Concomitant]
     Dosage: 28 IU, QD
     Route: 058
  7. OXYGEN [Concomitant]
     Route: 055
  8. AMBIEN [Concomitant]
     Dosage: 5 MG, PRN
     Route: 048
     Dates: start: 20120619
  9. PROZAC [Concomitant]
     Dosage: 1 DF, QD
     Route: 048
     Dates: start: 20131001
  10. REVATIO [Concomitant]
     Dosage: 1 DF, TID
     Route: 048
     Dates: start: 20130604
  11. CARDIZEM                           /00489702/ [Concomitant]
     Dosage: 240 MG, QD
     Route: 048
  12. TRICOR                             /00499301/ [Concomitant]
     Dosage: 145 MG, QD
     Route: 048
  13. LASIX                              /00032601/ [Concomitant]
     Dosage: 1.5 DF, QD
     Route: 048
     Dates: start: 20130605
  14. GARAMYCIN [Concomitant]
     Dosage: UNK, Q4HR
     Route: 047
     Dates: start: 20130326
  15. LORCET-HD [Concomitant]
     Dosage: 1 DF, QD
     Route: 048
  16. LISINOPRIL [Concomitant]
     Dosage: 1 DF, QD
     Route: 048
     Dates: start: 20130830
  17. NIASPAN [Concomitant]
     Dosage: 2000 MG, QD
     Route: 048
  18. ARANESP [Concomitant]
     Dosage: 25 ?G, Q1WK
     Route: 058
  19. COLACE [Concomitant]
     Dosage: 200 MG, QD
     Route: 048
  20. LIDODERM [Concomitant]
     Dosage: 1 DF, BID
     Route: 062
  21. PRILOSEC                           /00661201/ [Concomitant]
     Dosage: 40 MG, BID
     Route: 048
  22. OXY.IR [Concomitant]
     Dosage: 5 MG, QID
     Route: 048
  23. MIRALAX                            /00754501/ [Concomitant]
     Dosage: 17 G, QD
     Route: 048

REACTIONS (1)
  - Abdominal discomfort [Recovered/Resolved]
